FAERS Safety Report 5340801-9 (Version None)
Quarter: 2007Q2

REPORT INFORMATION
  Report Type: 
  Country: None (occurrence: None)
  Receive Date: 20070405
  Receipt Date: 20070113
  Transmission Date: 20071010
  Serious: No
  Sender: FDA-Public Use
  Company Number: US200702000076

PATIENT
  Sex: Male

DRUGS (2)
  1. CYMBALTA [Suspect]
     Dosage: 30 MG, 2/D, ORAL
     Route: 048
  2. LAMICTAL [Concomitant]

REACTIONS (1)
  - DRUG SCREEN FALSE POSITIVE [None]
